FAERS Safety Report 23116816 (Version 1)
Quarter: 2023Q4

REPORT INFORMATION
  Report Type: Spontaneous
  Country: US (occurrence: None)
  Receive Date: 20231025
  Receipt Date: 20231025
  Transmission Date: 20240109
  Serious: No
  Sender: FDA-Public Use
  Company Number: None

PATIENT
  Age: 61 Year
  Sex: Female

DRUGS (5)
  1. TALTZ [Suspect]
     Active Substance: IXEKIZUMAB
     Indication: Psoriasis
     Dosage: FREQUENCY : AS DIRECTED;?
     Route: 058
     Dates: start: 20231010
  2. TALTZ [Suspect]
     Active Substance: IXEKIZUMAB
     Dosage: FREQUENCY : AS DIRECTED;?
     Route: 058
  3. ALLEGRA ALRG [Concomitant]
  4. MUCINEX [Concomitant]
     Active Substance: GUAIFENESIN
  5. TYLENOL [Concomitant]
     Active Substance: ACETAMINOPHEN

REACTIONS (2)
  - Wrong technique in product usage process [None]
  - Wrong schedule [None]

NARRATIVE: CASE EVENT DATE: 20231012
